FAERS Safety Report 8419392-1 (Version None)
Quarter: 2012Q2

REPORT INFORMATION
  Report Type: 
  Country: None (occurrence: None)
  Receive Date: 20120607
  Receipt Date: 20120531
  Transmission Date: 20120825
  Serious: Yes (Hospitalization)
  Sender: FDA-Public Use
  Company Number: US-GLAXOSMITHKLINE-A0875871A

PATIENT
  Age: 49 Year
  Sex: Male
  Weight: 91.8 kg

DRUGS (1)
  1. AVANDIA [Suspect]
     Indication: DIABETES MELLITUS
     Dosage: 4MG PER DAY
     Route: 048
     Dates: start: 20000713, end: 20010801

REACTIONS (6)
  - CORONARY ARTERY BYPASS [None]
  - DYSPNOEA [None]
  - CARDIAC PACEMAKER INSERTION [None]
  - CORONARY ARTERY DISEASE [None]
  - ATRIOVENTRICULAR BLOCK COMPLETE [None]
  - STENT PLACEMENT [None]
